FAERS Safety Report 9825532 (Version 2)
Quarter: 2014Q1

REPORT INFORMATION
  Report Type: Spontaneous
  Country: US (occurrence: US)
  Receive Date: 20140117
  Receipt Date: 20140218
  Transmission Date: 20141002
  Serious: Yes (Hospitalization, Other)
  Sender: FDA-Public Use
  Company Number: US-ASTRAZENECA-2014SE02653

PATIENT
  Age: 56 Year
  Sex: Male
  Weight: 70.3 kg

DRUGS (7)
  1. LISINOPRIL [Suspect]
     Indication: HYPERTENSION
     Route: 048
     Dates: start: 2010
  2. LISINOPRIL [Suspect]
     Indication: HYPERTENSION
     Route: 048
  3. METOPROLOL TARTRATE [Suspect]
     Indication: HYPERTENSION
     Route: 048
     Dates: start: 2010
  4. HYDROCHLOROTHIAZIDE (NON AZ DRUG) [Suspect]
     Route: 065
  5. ASPIRIN [Concomitant]
     Indication: CARDIAC DISORDER
     Route: 048
  6. MULTIVITAMIN MINERAL [Concomitant]
     Indication: MINERAL SUPPLEMENTATION
     Dosage: NR DAILY
     Route: 048
  7. LEVETIRACETAM [Concomitant]
     Dates: end: 20131229

REACTIONS (21)
  - Dehydration [Recovered/Resolved]
  - Protein total increased [Recovering/Resolving]
  - Loss of consciousness [Recovered/Resolved]
  - Convulsion [Unknown]
  - Rhabdomyolysis [Unknown]
  - Blood pressure increased [Unknown]
  - Anxiety [Unknown]
  - Hypovitaminosis [Unknown]
  - Extrasystoles [Unknown]
  - Speech disorder [Unknown]
  - Hypertensive heart disease [Unknown]
  - Musculoskeletal stiffness [Unknown]
  - Pain [Unknown]
  - Malaise [Unknown]
  - Agitation [Unknown]
  - Depression [Unknown]
  - Emotional disorder [Unknown]
  - Confusional state [Unknown]
  - Anger [Unknown]
  - Memory impairment [Unknown]
  - Drug ineffective [Unknown]
